FAERS Safety Report 5124581-8 (Version None)
Quarter: 2006Q3

REPORT INFORMATION
  Report Type: 
  Country: None (occurrence: None)
  Receive Date: 20060822
  Receipt Date: 20060503
  Transmission Date: 20061208
  Serious: No
  Sender: FDA-Public Use
  Company Number: PHEH2006US05888

PATIENT
  Age: 88 Year
  Sex: Female

DRUGS (1)
  1. ENABLEX [Suspect]
     Indication: HYPERTONIC BLADDER
     Dosage: 15 MG, ONCE/SINGLE, ORAL
     Route: 048
     Dates: start: 20060408, end: 20060408

REACTIONS (1)
  - HYPERSOMNIA [None]
